FAERS Safety Report 7809934-9 (Version None)
Quarter: 2011Q4

REPORT INFORMATION
  Report Type: 
  Country: None (occurrence: None)
  Receive Date: 20111012
  Receipt Date: 20111011
  Transmission Date: 20120403
  Serious: No
  Sender: FDA-Public Use
  Company Number: US-PFIZER INC-2011243012

PATIENT
  Sex: Male
  Weight: 91.156 kg

DRUGS (2)
  1. IBUPROFEN (ADVIL) [Suspect]
     Indication: CHEST DISCOMFORT
     Dosage: 200 MG, 2X/DAY
     Route: 048
     Dates: start: 20110401
  2. ADVIL PM [Concomitant]
     Indication: SLEEP DISORDER
     Dosage: UNK

REACTIONS (1)
  - DRUG INEFFECTIVE [None]
